FAERS Safety Report 25118541 (Version 2)
Quarter: 2025Q1

REPORT INFORMATION
  Report Type: Spontaneous
  Country: US (occurrence: US)
  Receive Date: 20250325
  Receipt Date: 20250326
  Transmission Date: 20250409
  Serious: No
  Sender: ELI LILLY AND COMPANY
  Company Number: US-ELI_LILLY_AND_COMPANY-US202503020460

PATIENT
  Age: 51 Year
  Sex: Male

DRUGS (6)
  1. HUMALOG [Suspect]
     Active Substance: INSULIN LISPRO
     Indication: Type 2 diabetes mellitus
     Dosage: 200 U, DAILY
     Route: 065
     Dates: start: 20180105
  2. HUMALOG [Suspect]
     Active Substance: INSULIN LISPRO
     Dosage: 200 U, DAILY
     Route: 065
     Dates: start: 20180105
  3. HUMALOG [Suspect]
     Active Substance: INSULIN LISPRO
     Dosage: 200 U, DAILY
     Route: 065
  4. HUMALOG [Suspect]
     Active Substance: INSULIN LISPRO
     Dosage: 200 U, DAILY
     Route: 065
  5. HUMALOG [Suspect]
     Active Substance: INSULIN LISPRO
     Dosage: 200 U, DAILY
     Route: 065
  6. LISINOPRIL [Concomitant]
     Active Substance: LISINOPRIL
     Indication: Product used for unknown indication
     Route: 065
     Dates: start: 20130705

REACTIONS (2)
  - Blood glucose increased [Unknown]
  - Drug ineffective [Unknown]
